FAERS Safety Report 8792771 (Version 2)
Quarter: 2012Q4

REPORT INFORMATION
  Report Type: 
  Country: JP (occurrence: JP)
  Receive Date: 20120918
  Receipt Date: 20121018
  Transmission Date: 20130627
  Serious: Yes (Other)
  Sender: FDA-Public Use
  Company Number: JP-GLAXOSMITHKLINE-B0828328A

PATIENT
  Age: 32 Year
  Sex: Female

DRUGS (8)
  1. LAMICTAL [Suspect]
     Indication: BIPOLAR I DISORDER
     Dosage: 25MG Per day
     Route: 048
     Dates: start: 20120815, end: 20120822
  2. LAMICTAL [Suspect]
     Indication: BIPOLAR I DISORDER
     Dosage: 50MG Per day
     Route: 048
     Dates: start: 20120823, end: 20120829
  3. CRAVIT [Suspect]
     Indication: PRODUCT USED FOR UNKNOWN INDICATION
     Route: 065
  4. LUVOX [Concomitant]
     Indication: BIPOLAR I DISORDER
     Dosage: 50MG Three times per day
     Route: 048
     Dates: start: 20120613
  5. CONSTAN [Concomitant]
     Indication: BIPOLAR I DISORDER
     Dosage: .8MG Three times per day
     Route: 048
     Dates: start: 20120629
  6. SEROQUEL [Concomitant]
     Indication: BIPOLAR I DISORDER
     Dosage: 50MG Three times per day
     Route: 048
     Dates: start: 20120613
  7. GASMOTIN [Concomitant]
     Indication: ABDOMINAL SYMPTOM
     Dosage: 50MG Three times per day
     Route: 048
     Dates: start: 20120613
  8. XYZAL [Concomitant]
     Indication: HYPERSENSITIVITY
     Dosage: 5MG Per day
     Route: 048
     Dates: start: 20120321

REACTIONS (11)
  - Pancytopenia [Recovered/Resolved]
  - Infection [Recovered/Resolved]
  - Neutrophil percentage decreased [Unknown]
  - Eosinophil percentage increased [Unknown]
  - Platelet count decreased [Unknown]
  - Red blood cell count decreased [Unknown]
  - Pyrexia [Recovered/Resolved]
  - White blood cell count decreased [Unknown]
  - C-reactive protein increased [Unknown]
  - Haematocrit decreased [Unknown]
  - Lymphocyte percentage increased [Unknown]
